FAERS Safety Report 6337877-9 (Version None)
Quarter: 2009Q3

REPORT INFORMATION
  Report Type: 
  Country: None (occurrence: None)
  Receive Date: 20090902
  Receipt Date: 20090821
  Transmission Date: 20100115
  Serious: Yes (Death, Life-Threatening, Hospitalization, Disabling)
  Sender: FDA-Public Use
  Company Number: US-EISAI INC.-E2020-05092-SOL-US

PATIENT
  Sex: Male
  Weight: 84 kg

DRUGS (11)
  1. DONEPEZIL HCL [Suspect]
     Route: 048
     Dates: start: 20070101, end: 20090817
  2. NAMENDA [Concomitant]
     Route: 048
     Dates: start: 20080101, end: 20090817
  3. OMEPRAZOLE [Concomitant]
     Route: 048
     Dates: start: 20070101, end: 20090817
  4. PROVIGIL [Concomitant]
     Route: 048
     Dates: start: 20080101, end: 20090817
  5. AVODART [Concomitant]
     Route: 048
     Dates: start: 20070101, end: 20090817
  6. ASPIRIN [Concomitant]
     Route: 048
     Dates: start: 20070101, end: 20090817
  7. UROXATRAL [Concomitant]
     Route: 048
     Dates: start: 20070101, end: 20090817
  8. CITRUCEL [Concomitant]
     Route: 048
     Dates: start: 20080101, end: 20090817
  9. PRIMIDONE [Concomitant]
     Route: 048
     Dates: start: 20080101, end: 20090817
  10. MILK OF MAGNESIA TAB [Concomitant]
     Route: 048
     Dates: start: 20070101, end: 20090817
  11. LORAZEPAM [Concomitant]
     Route: 048
     Dates: start: 20070101, end: 20090817

REACTIONS (3)
  - ATRIOVENTRICULAR BLOCK COMPLETE [None]
  - DEATH [None]
  - DYSPHAGIA [None]
